FAERS Safety Report 24686413 (Version 1)
Quarter: 2024Q4

REPORT INFORMATION
  Report Type: Report from Study
  Country: CA (occurrence: CA)
  Receive Date: 20241202
  Receipt Date: 20241202
  Transmission Date: 20250115
  Serious: Yes (Other)
  Sender: TAKEDA
  Company Number: CA-TAKEDA-2024TUS118394

PATIENT
  Sex: Male

DRUGS (1)
  1. HUMAN IMMUNOGLOBULIN G [Suspect]
     Active Substance: HUMAN IMMUNOGLOBULIN G
     Indication: Primary immunodeficiency syndrome
     Dosage: 15 GRAM, 1/WEEK
     Dates: start: 20181024

REACTIONS (10)
  - Colitis [Unknown]
  - Oedema mucosal [Unknown]
  - Polyp [Unknown]
  - Lymphoid tissue hyperplasia [Unknown]
  - Gastrointestinal inflammation [Unknown]
  - Fistula [Unknown]
  - Frequent bowel movements [Unknown]
  - Haemorrhoids thrombosed [Unknown]
  - Faecal calprotectin increased [Unknown]
  - Diarrhoea [Unknown]

NARRATIVE: CASE EVENT DATE: 20220101
